FAERS Safety Report 9190396 (Version 4)
Quarter: 2013Q3

REPORT INFORMATION
  Report Type: Spontaneous
  Country: US (occurrence: US)
  Receive Date: 20130326
  Receipt Date: 20130826
  Transmission Date: 20140515
  Serious: Yes (Other)
  Sender: FDA-Public Use
  Company Number: US-SANOFI-AVENTIS-2013SA021820

PATIENT
  Age: 61 Year
  Sex: Female
  Weight: 67 kg

DRUGS (6)
  1. AUBAGIO [Suspect]
     Indication: MULTIPLE SCLEROSIS
     Route: 048
     Dates: start: 20121201
  2. METFORMIN [Concomitant]
  3. VITAMIN D [Concomitant]
  4. AMINOPYRIDINE [Concomitant]
  5. NEXIUM [Concomitant]
  6. ACIPHEX [Concomitant]

REACTIONS (4)
  - Retinal disorder [Unknown]
  - Colitis microscopic [Recovered/Resolved]
  - Diarrhoea [Recovered/Resolved]
  - Alopecia [Unknown]
